FAERS Safety Report 4843670-6 (Version None)
Quarter: 2005Q4

REPORT INFORMATION
  Report Type: 
  Country: None (occurrence: None)
  Receive Date: 20051202
  Receipt Date: 20051018
  Transmission Date: 20060501
  Serious: Yes (Disabling)
  Sender: FDA-Public Use
  Company Number: 2005UW15926

PATIENT
  Age: 56 Year
  Sex: Male

DRUGS (6)
  1. SEROQUEL [Suspect]
     Indication: MOOD SWINGS
     Dosage: 400 MG DAILY + 50 MG HS
     Route: 048
     Dates: start: 20050701
  2. SEROQUEL [Suspect]
     Indication: DRUG THERAPY
     Dosage: 400 MG DAILY + 50 MG HS
     Route: 048
     Dates: start: 20050701
  3. SEROQUEL [Suspect]
     Indication: PSYCHOTIC DISORDER
     Dosage: 400 MG DAILY + 50 MG HS
     Route: 048
     Dates: start: 20050701
  4. PAXIL [Concomitant]
  5. CLOMIPRAMINE [Concomitant]
     Indication: DEPRESSION
     Dates: start: 20050901
  6. IMOVANE [Concomitant]

REACTIONS (1)
  - RETINAL DETACHMENT [None]
